FAERS Safety Report 17416477 (Version 1)
Quarter: 2020Q1

REPORT INFORMATION
  Report Type: Spontaneous
  Country: US (occurrence: US)
  Receive Date: 20200213
  Receipt Date: 20200213
  Transmission Date: 20200409
  Serious: No
  Sender: FDA-Public Use
  Company Number: None

PATIENT
  Age: 37 Year
  Sex: Male
  Weight: 65.25 kg

DRUGS (14)
  1. ZYRTEX 10MG [Concomitant]
  2. LEXAPRO [Concomitant]
     Active Substance: ESCITALOPRAM OXALATE
  3. PROAIR HFA [Concomitant]
     Active Substance: ALBUTEROL SULFATE
  4. PRILOSEC OTC [Concomitant]
     Active Substance: OMEPRAZOLE MAGNESIUM
  5. DUPIXENT [Suspect]
     Active Substance: DUPILUMAB
     Indication: ASTHMA
     Dosage: ?          QUANTITY:2 INJECTION(S);OTHER FREQUENCY:1 LOADING DOSE;?
     Route: 058
     Dates: start: 20200131, end: 20200131
  6. CLINDAMYCIN GEL [Concomitant]
     Active Substance: CLINDAMYCIN PHOSPHATE
  7. FLONASE [Concomitant]
     Active Substance: FLUTICASONE PROPIONATE
  8. LISINOPRIL. [Concomitant]
     Active Substance: LISINOPRIL
  9. DUONEB AND BUDESONIDE NEBS [Concomitant]
  10. BENZOYL PEROXIDE WASH 10% [Concomitant]
  11. IMODIUM [Concomitant]
     Active Substance: LOPERAMIDE HYDROCHLORIDE
  12. LIBRAX [Concomitant]
     Active Substance: CHLORDIAZEPOXIDE HYDROCHLORIDE\CLIDINIUM BROMIDE
  13. DOXYCYCLIN HYCLATE 100MG [Concomitant]
  14. DULERA [Concomitant]
     Active Substance: FORMOTEROL FUMARATE DIHYDRATE\MOMETASONE FUROATE

REACTIONS (4)
  - Injection site urticaria [None]
  - Injection site pruritus [None]
  - Erythema [None]
  - Rash [None]

NARRATIVE: CASE EVENT DATE: 20200206
